FAERS Safety Report 26082123 (Version 1)
Quarter: 2025Q4

REPORT INFORMATION
  Report Type: Spontaneous
  Country: US (occurrence: US)
  Receive Date: 20251124
  Receipt Date: 20251124
  Transmission Date: 20260118
  Serious: No
  Sender: INSMED
  Company Number: US-INSMED, INC.-2025-00281-US

PATIENT
  Sex: Female

DRUGS (4)
  1. ARIKAYCE [Suspect]
     Active Substance: AMIKACIN
     Indication: Product used for unknown indication
     Dosage: UNK, UNK
     Route: 055
  2. CEFDINIR [Suspect]
     Active Substance: CEFDINIR
     Indication: Product used for unknown indication
     Dosage: UNK, UNK
     Route: 065
  3. AZITHROMYCIN [Suspect]
     Active Substance: AZITHROMYCIN
     Indication: Product used for unknown indication
     Dosage: UNK, UNK
     Route: 065
  4. CEFPODOXIME [Suspect]
     Active Substance: CEFPODOXIME
     Indication: Product used for unknown indication
     Dosage: UNK, UNK
     Route: 065

REACTIONS (1)
  - Drug ineffective [Unknown]
